FAERS Safety Report 6803800-3 (Version None)
Quarter: 2010Q2

REPORT INFORMATION
  Report Type: 
  Country: None (occurrence: None)
  Receive Date: 20100628
  Receipt Date: 20100618
  Transmission Date: 20101027
  Serious: Yes (Hospitalization)
  Sender: FDA-Public Use
  Company Number: JP-ABBOTT-10P-087-0632863-00

PATIENT
  Sex: Female
  Weight: 54.8 kg

DRUGS (12)
  1. HUMIRA [Suspect]
     Indication: RHEUMATOID ARTHRITIS
     Route: 058
     Dates: start: 20090728, end: 20100302
  2. METHOTREXATE [Concomitant]
     Indication: RHEUMATOID ARTHRITIS
     Dosage: 8 MG WEEKLY
     Route: 048
  3. SALAZOSULFAPYRIDINE [Concomitant]
     Indication: RHEUMATOID ARTHRITIS
     Dosage: 1000 MG DAILY
     Route: 048
     Dates: end: 20091103
  4. PREDNISOLONE [Concomitant]
     Indication: RHEUMATOID ARTHRITIS
     Dosage: 4 MG DAILY
     Route: 048
     Dates: start: 20091006, end: 20091103
  5. PREDNISOLONE [Concomitant]
     Dosage: 3MG DAILY
     Route: 048
     Dates: start: 20091104, end: 20100301
  6. PREDNISOLONE [Concomitant]
     Dosage: 2 MG DAILY
     Route: 048
     Dates: start: 20100302, end: 20100311
  7. FOLIC ACID [Concomitant]
     Indication: PROPHYLAXIS
     Dosage: 5 MG DAILY
     Route: 048
  8. FOLIC ACID [Concomitant]
     Indication: ADVERSE DRUG REACTION
  9. ALENDRONATE SODIUM [Concomitant]
     Indication: OSTEOPOROSIS
     Route: 048
  10. SIMVASTATIN [Concomitant]
     Indication: HYPERLIPIDAEMIA
     Route: 048
  11. MELOXICAM [Concomitant]
     Indication: RHEUMATOID ARTHRITIS
     Route: 048
  12. LANSOPRAZOLE [Concomitant]
     Indication: GASTRITIS PROPHYLAXIS
     Route: 048

REACTIONS (6)
  - BLOOD BETA-D-GLUCAN INCREASED [None]
  - DRUG INEFFECTIVE [None]
  - INTERSTITIAL LUNG DISEASE [None]
  - PNEUMOCYSTIS JIROVECI PNEUMONIA [None]
  - RESPIRATORY DISORDER [None]
  - RESPIRATORY FAILURE [None]
